FAERS Safety Report 19889745 (Version 2)
Quarter: 2021Q4

REPORT INFORMATION
  Report Type: Spontaneous
  Country: US (occurrence: US)
  Receive Date: 20210928
  Receipt Date: 20211007
  Transmission Date: 20220303
  Serious: Yes (Other)
  Sender: FDA-Public Use
  Company Number: US-AMGEN-USASP2021146016

PATIENT
  Age: 14 Year
  Sex: Male

DRUGS (16)
  1. BLINCYTO [Suspect]
     Active Substance: BLINATUMOMAB
     Indication: Acute lymphocytic leukaemia
     Dosage: 15 MILLIGRAM/SQ. METER, QD
     Route: 065
     Dates: start: 20210916, end: 20210918
  2. BLINCYTO [Suspect]
     Active Substance: BLINATUMOMAB
     Indication: Minimal residual disease
     Dosage: 5 MICROGRAM/SQ. METER
     Route: 065
     Dates: start: 20210921
  3. CHLORHEXIDINE GLUCONATE [Concomitant]
     Active Substance: CHLORHEXIDINE GLUCONATE
     Indication: Prophylaxis
     Dosage: UNK UNK, TID
     Dates: start: 20210915
  4. CYTARABINE [Concomitant]
     Active Substance: CYTARABINE
     Dosage: 70 MILLIGRAM
     Route: 037
     Dates: start: 20210915
  5. DOCUSATE [Concomitant]
     Active Substance: DOCUSATE
     Indication: Faeces soft
     Dosage: 100 MILLIGRAM, BID
     Route: 048
     Dates: start: 20210915, end: 20210924
  6. FAMOTIDINE [Concomitant]
     Active Substance: FAMOTIDINE
     Dosage: 20 MILLIGRAM, BID
     Route: 048
     Dates: start: 20210917
  7. FENOFIBRATE [Concomitant]
     Active Substance: FENOFIBRATE
     Indication: Blood triglycerides abnormal
     Dosage: 48 MILLIGRAM, QD
     Route: 048
     Dates: start: 20210916, end: 20210921
  8. OMEGA-3 FATTY ACIDS [Concomitant]
     Active Substance: OMEGA-3 FATTY ACIDS
     Dosage: 1 GRAM, BID
     Route: 048
     Dates: start: 20210915, end: 20210928
  9. KETAMINE;PROPOFOL [Concomitant]
     Indication: Sedation
     Dosage: UNK
     Route: 042
     Dates: start: 20210915
  10. NYSTATIN [Concomitant]
     Active Substance: NYSTATIN
     Indication: Prophylaxis
     Dosage: 5 MILLILITER, TID
     Route: 048
  11. ONDANSETRON [Concomitant]
     Active Substance: ONDANSETRON
     Indication: Premedication
     Dosage: 6 MILLIGRAM
     Route: 042
     Dates: start: 20210916
  12. ONDANSETRON [Concomitant]
     Active Substance: ONDANSETRON
     Dosage: 6 MILLIGRAM, Q8H
     Route: 042
     Dates: start: 20210916, end: 20210918
  13. POLYETHYLENE GLYCOL 3350 [Concomitant]
     Active Substance: POLYETHYLENE GLYCOL 3350
     Indication: Constipation
     Dosage: 17 GRAM, QD
     Route: 048
     Dates: start: 20210915, end: 20210925
  14. PROMETHAZINE [Concomitant]
     Active Substance: PROMETHAZINE HYDROCHLORIDE
     Dosage: 25 MILLIGRAM, Q6H
     Route: 061
     Dates: start: 20210915
  15. SENNOSIDES [Concomitant]
     Active Substance: SENNOSIDES
     Indication: Constipation
     Dosage: 8.6 MILLIGRAM, BID
     Route: 048
  16. SULFAMETHOXAZOLE\TRIMETHOPRIM [Concomitant]
     Active Substance: SULFAMETHOXAZOLE\TRIMETHOPRIM
     Indication: Prophylaxis
     Dosage: 1.5 TABLETS, BID
     Dates: start: 20210918

REACTIONS (4)
  - Confusional state [Recovered/Resolved]
  - Neurotoxicity [Recovered/Resolved]
  - Ataxia [Recovered/Resolved]
  - Device occlusion [Unknown]

NARRATIVE: CASE EVENT DATE: 20210918
